FAERS Safety Report 8990905 (Version 1)
Quarter: 2012Q4

REPORT INFORMATION
  Report Type: Spontaneous
  Country: US (occurrence: None)
  Receive Date: 20121226
  Receipt Date: 20121226
  Transmission Date: 20130627
  Serious: No
  Sender: FDA-Public Use
  Company Number: None

PATIENT
  Sex: Male
  Weight: 81.65 kg

DRUGS (3)
  1. PLAVIX [Suspect]
     Indication: CORONARY ARTERY DISEASE
     Route: 048
  2. PLAVIX [Suspect]
     Indication: CABG
     Route: 048
  3. PLAVIX [Suspect]
     Indication: AORTIC VALVE REPLACEMENT
     Route: 048

REACTIONS (1)
  - Unevaluable event [None]
